FAERS Safety Report 18446277 (Version 2)
Quarter: 2020Q4

REPORT INFORMATION
  Report Type: Spontaneous
  Country: US (occurrence: US)
  Receive Date: 20201030
  Receipt Date: 20201119
  Transmission Date: 20210114
  Serious: Yes (Other)
  Sender: FDA-Public Use
  Company Number: US-HIKMA PHARMACEUTICALS USA INC.-US-H14001-20-52420

PATIENT
  Age: 40 Year
  Sex: Female
  Weight: 82.55 kg

DRUGS (4)
  1. EXEMESTANE. [Concomitant]
     Active Substance: EXEMESTANE
     Indication: THERAPEUTIC OVARIAN SUPPRESSION
     Dosage: UNKNOWN
     Route: 065
  2. ZOMETA [Suspect]
     Active Substance: ZOLEDRONIC ACID
     Indication: INVASIVE LOBULAR BREAST CARCINOMA
     Route: 042
  3. SALINE [Concomitant]
     Active Substance: SODIUM CHLORIDE
     Indication: INVASIVE LOBULAR BREAST CARCINOMA
     Dosage: UNKNOWN
     Route: 042
  4. GOSERELIN [Concomitant]
     Active Substance: GOSERELIN
     Indication: THERAPEUTIC OVARIAN SUPPRESSION
     Route: 065

REACTIONS (1)
  - Rhabdomyolysis [Recovered/Resolved]
